FAERS Safety Report 6749722-8 (Version None)
Quarter: 2010Q2

REPORT INFORMATION
  Report Type: 
  Country: None (occurrence: None)
  Receive Date: 20100601
  Receipt Date: 20100527
  Transmission Date: 20101027
  Serious: Yes (Death, Hospitalization, Disabling, Other)
  Sender: FDA-Public Use
  Company Number: JP-BAYER-200912711BYL

PATIENT
  Age: 76 Year
  Sex: Male
  Weight: 50 kg

DRUGS (24)
  1. NEXAVAR [Suspect]
     Indication: HEPATIC NEOPLASM MALIGNANT
     Dosage: TOTAL DAILY DOSE: 800 MG  UNIT DOSE: 200 MG
     Route: 048
     Dates: start: 20090704, end: 20090728
  2. NEXAVAR [Suspect]
     Dosage: TOTAL DAILY DOSE: 400 MG  UNIT DOSE: 200 MG
     Route: 048
     Dates: start: 20090729, end: 20091125
  3. MUCOTRON [Concomitant]
     Dosage: SINCE BEFORE ADMINISTRATION
     Route: 048
  4. MUCOSIL-10 [Concomitant]
     Dosage: SINCE BEFORE ADMINISTRATION
     Route: 048
  5. FLIVAS OD [Concomitant]
     Dosage: SINCE BEFORE ADMINISTRATION
     Route: 048
  6. TULOBUTEROL [Concomitant]
     Dosage: SINCE BEFORE ADMINISTRATION
     Route: 062
  7. ARICEPT [Concomitant]
     Dosage: SINCE BEFORE ADMINISTRATION
     Route: 048
  8. PARIET [Concomitant]
     Dosage: SINCE BEFORE ADMINISTRATION
     Route: 048
  9. ETODOLAC [Concomitant]
     Dosage: SINCE BEFORE ADMINISTRATION
     Route: 048
  10. LOXOPROFEN SODIUM [Concomitant]
     Route: 048
     Dates: start: 20091014
  11. LOXOPROFEN SODIUM [Concomitant]
     Dosage: SINCE BEFORE ADMINISTRATION
     Route: 048
  12. GLUFAST [Concomitant]
     Dosage: SINCE BEFORE ADMINISTRATION
     Route: 048
  13. MICONAZOLE NITRATE [Concomitant]
     Route: 048
     Dates: start: 20090917, end: 20090917
  14. LENDORMIN [Concomitant]
     Route: 048
     Dates: start: 20091014
  15. SLOW-K [Concomitant]
     Route: 048
     Dates: start: 20091210, end: 20091215
  16. PHELLOBERIN [Concomitant]
     Route: 048
     Dates: start: 20091212, end: 20091217
  17. MIROPIN [Concomitant]
     Route: 048
     Dates: start: 20091213, end: 20091213
  18. BIOFERMIN R [Concomitant]
     Route: 048
     Dates: start: 20091214, end: 20091216
  19. ALBUMINAR [Concomitant]
     Route: 042
     Dates: start: 20091204, end: 20091210
  20. FUROSEMIDE [Concomitant]
     Route: 042
     Dates: start: 20091215, end: 20091218
  21. FUROSEMIDE [Concomitant]
     Route: 042
     Dates: start: 20091204, end: 20091208
  22. FUROSEMIDE [Concomitant]
     Route: 042
     Dates: start: 20100106, end: 20100113
  23. VENECTOMIN [Concomitant]
     Route: 042
     Dates: start: 20091207, end: 20091214
  24. TERUFIS [Concomitant]
     Route: 042
     Dates: start: 20100104, end: 20100113

REACTIONS (15)
  - ANAEMIA [None]
  - ASCITES [None]
  - BLOOD BILIRUBIN INCREASED [None]
  - C-REACTIVE PROTEIN INCREASED [None]
  - COUGH [None]
  - DELIRIUM [None]
  - DIARRHOEA [None]
  - HEPATIC ENCEPHALOPATHY [None]
  - HYPOALBUMINAEMIA [None]
  - HYPOKALAEMIA [None]
  - JAUNDICE [None]
  - LIVER ABSCESS [None]
  - OEDEMA DUE TO RENAL DISEASE [None]
  - PLATELET COUNT DECREASED [None]
  - STOMATITIS [None]
